FAERS Safety Report 4330103-1 (Version None)
Quarter: 2004Q1

REPORT INFORMATION
  Report Type: 
  Country: None (occurrence: None)
  Receive Date: 20040329
  Receipt Date: 20040315
  Transmission Date: 20041129
  Serious: Yes (Life-Threatening)
  Sender: FDA-Public Use
  Company Number: NL-JNJFOC-20040301151

PATIENT
  Age: 69 Year
  Sex: Female
  Weight: 75 kg

DRUGS (1)
  1. DURAGESIC [Suspect]
     Indication: PAIN
     Dosage: 25 UG/HR, 5 IN 1 TOTAL, TRANSDERAMAL
     Route: 062
     Dates: start: 20040226, end: 20040227

REACTIONS (6)
  - COMA [None]
  - MEDICATION ERROR [None]
  - PNEUMONIA ASPIRATION [None]
  - RESPIRATORY DEPRESSION [None]
  - SOMNOLENCE [None]
  - SOPOR [None]
